FAERS Safety Report 7817977-4 (Version None)
Quarter: 2011Q4

REPORT INFORMATION
  Report Type: 
  Country: None (occurrence: None)
  Receive Date: 20111017
  Receipt Date: 20111006
  Transmission Date: 20120403
  Serious: Yes (Hospitalization)
  Sender: FDA-Public Use
  Company Number: CH-GLAXOSMITHKLINE-B0755432A

PATIENT
  Age: 50 Year
  Sex: Male

DRUGS (3)
  1. CLOBETASOL PROPIONATE [Suspect]
     Indication: PSORIASIS
     Route: 061
     Dates: start: 20110415, end: 20110401
  2. FOLIC ACID [Concomitant]
     Dosage: 5MG WEEKLY
     Route: 065
     Dates: start: 20110415
  3. METHOTREXATE SODIUM [Suspect]
     Indication: PSORIASIS
     Route: 058
     Dates: start: 20110415, end: 20110415

REACTIONS (2)
  - GASTRIC PERFORATION [None]
  - DRUG INTERACTION [None]
